FAERS Safety Report 5841427-0 (Version None)
Quarter: 2008Q3

REPORT INFORMATION
  Report Type: 
  Country: None (occurrence: None)
  Receive Date: 20080812
  Receipt Date: 20080804
  Transmission Date: 20090109
  Serious: No
  Sender: FDA-Public Use
  Company Number: US-BAYER-200830064NA

PATIENT
  Age: 36 Year
  Sex: Female

DRUGS (2)
  1. MIRENA [Suspect]
     Indication: CONTRACEPTION
     Route: 015
     Dates: start: 20080801
  2. PERCOCET [Concomitant]
     Indication: PROCEDURAL PAIN
     Route: 048

REACTIONS (5)
  - BACK PAIN [None]
  - FATIGUE [None]
  - HYPERHIDROSIS [None]
  - PANIC ATTACK [None]
  - PROCEDURAL PAIN [None]
